FAERS Safety Report 13948743 (Version 2)
Quarter: 2017Q4

REPORT INFORMATION
  Report Type: Spontaneous
  Country: US (occurrence: US)
  Receive Date: 20170908
  Receipt Date: 20171016
  Transmission Date: 20180320
  Serious: Yes (Death)
  Sender: FDA-Public Use
  Company Number: US-TAIHO ONCOLOGY INC-EU-2017-01177

PATIENT
  Age: 51 Year
  Sex: Female

DRUGS (12)
  1. DILAUDID [Concomitant]
     Active Substance: HYDROMORPHONE HYDROCHLORIDE
     Dosage: NI
  2. FENTANYL. [Concomitant]
     Active Substance: FENTANYL
     Dosage: NI
  3. LORAZEPAM. [Concomitant]
     Active Substance: LORAZEPAM
     Dosage: NI
  4. GAS-X [Concomitant]
     Active Substance: DIMETHICONE
     Dosage: NI
  5. IBUPROFEN. [Concomitant]
     Active Substance: IBUPROFEN
     Dosage: NI
  6. SENNA S [Concomitant]
     Active Substance: DOCUSATE SODIUM\SENNA LEAF
     Dosage: NI
  7. LONSURF [Suspect]
     Active Substance: TIPIRACIL HYDROCHLORIDE\TRIFLURIDINE
     Indication: COLORECTAL CANCER METASTATIC
     Dosage: CYCLE 2 STARTED 02 AUGUST 2017
     Route: 048
     Dates: start: 20170715, end: 20170806
  8. MACROGOL [Concomitant]
     Active Substance: POLYETHYLENE GLYCOLS
     Dosage: NI
  9. LACTULOSE. [Concomitant]
     Active Substance: LACTULOSE
     Dosage: NI
  10. ONDANSETRON [Concomitant]
     Active Substance: ONDANSETRON
     Dosage: NI
  11. VENLAFAXINE [Concomitant]
     Active Substance: VENLAFAXINE HYDROCHLORIDE
     Dosage: NI
  12. PROCHLORPERAZINE. [Concomitant]
     Active Substance: PROCHLORPERAZINE
     Dosage: NI

REACTIONS (1)
  - Disease progression [Fatal]

NARRATIVE: CASE EVENT DATE: 20170818
